FAERS Safety Report 7403237-2 (Version None)
Quarter: 2011Q2

REPORT INFORMATION
  Report Type: 
  Country: None (occurrence: None)
  Receive Date: 20110408
  Receipt Date: 20110325
  Transmission Date: 20111010
  Serious: Yes (Hospitalization)
  Sender: FDA-Public Use
  Company Number: FR-BAYER-2011-027829

PATIENT
  Sex: Female
  Weight: 92 kg

DRUGS (4)
  1. CAMPATH [Suspect]
     Indication: CHRONIC LYMPHOCYTIC LEUKAEMIA
     Dosage: 30 MG, QD
     Route: 058
     Dates: start: 20110207, end: 20110323
  2. DEXAMETHASONE [Suspect]
     Indication: CHRONIC LYMPHOCYTIC LEUKAEMIA
     Dosage: 60 MG, QD
     Route: 048
     Dates: start: 20110301, end: 20110326
  3. CIBADREX [Concomitant]
  4. PEGFILGRASTIM [Suspect]
     Indication: NEUTROPENIA

REACTIONS (1)
  - PLEURAL EFFUSION [None]
